FAERS Safety Report 4967296-9 (Version None)
Quarter: 2006Q2

REPORT INFORMATION
  Report Type: 
  Country: None (occurrence: None)
  Receive Date: 20060404
  Receipt Date: 20060329
  Transmission Date: 20061013
  Serious: Yes (Other)
  Sender: FDA-Public Use
  Company Number: HQWYE596431MAR06

PATIENT

DRUGS (1)
  1. TYGACIL [Suspect]

REACTIONS (1)
  - CONVULSION [None]
